FAERS Safety Report 23319271 (Version 1)
Quarter: 2023Q4

REPORT INFORMATION
  Report Type: Spontaneous
  Country: US (occurrence: US)
  Receive Date: 20231220
  Receipt Date: 20231220
  Transmission Date: 20240109
  Serious: Yes (Other)
  Sender: FDA-Public Use
  Company Number: US-STRIDES ARCOLAB LIMITED-2023SP018821

PATIENT
  Age: 13 Year
  Sex: Male
  Weight: 47.6 kg

DRUGS (2)
  1. LETROZOLE [Suspect]
     Active Substance: LETROZOLE
     Indication: Short stature
     Dosage: 2.5 MILLIGRAM, QD
     Route: 065
  2. SOMATROPIN [Concomitant]
     Active Substance: SOMATROPIN
     Indication: Short stature
     Dosage: UNK
     Route: 065

REACTIONS (2)
  - Obsessive-compulsive symptom [Recovered/Resolved]
  - Off label use [Unknown]
